FAERS Safety Report 6339804-7 (Version None)
Quarter: 2009Q3

REPORT INFORMATION
  Report Type: 
  Country: None (occurrence: None)
  Receive Date: 20090903
  Receipt Date: 20090826
  Transmission Date: 20100115
  Serious: Yes (Other)
  Sender: FDA-Public Use
  Company Number: PHHY2009BR36475

PATIENT
  Sex: Female

DRUGS (2)
  1. DIOVAN AMLO FIX [Suspect]
     Dosage: 320/5 MG
  2. DIOVAN HCT [Suspect]

REACTIONS (1)
  - ROAD TRAFFIC ACCIDENT [None]
